FAERS Safety Report 7820229-X (Version None)
Quarter: 2011Q4

REPORT INFORMATION
  Report Type: 
  Country: None (occurrence: None)
  Receive Date: 20111018
  Receipt Date: 20111004
  Transmission Date: 20120403
  Serious: Yes (Other)
  Sender: FDA-Public Use
  Company Number: GB-ELI_LILLY_AND_COMPANY-GB201107007537

PATIENT
  Sex: Female

DRUGS (2)
  1. FORTEO [Suspect]
     Dosage: UNK, EACH EVENING
     Dates: start: 20100701
  2. FORTEO [Suspect]
     Dosage: UNK, EACH EVENING

REACTIONS (13)
  - DIZZINESS [None]
  - LACTATION DISORDER [None]
  - ABDOMINAL DISTENSION [None]
  - BREAST DISORDER [None]
  - ADVERSE EVENT [None]
  - BREAST SWELLING [None]
  - BREAST PAIN [None]
  - INSOMNIA [None]
  - BREAST TENDERNESS [None]
  - WEIGHT INCREASED [None]
  - FREQUENT BOWEL MOVEMENTS [None]
  - POLLAKIURIA [None]
  - HYPERSENSITIVITY [None]
